FAERS Safety Report 10307735 (Version 1)
Quarter: 2014Q3

REPORT INFORMATION
  Report Type: Spontaneous
  Country: US (occurrence: None)
  Receive Date: 20140714
  Receipt Date: 20140714
  Transmission Date: 20150326
  Serious: Yes (Hospitalization)
  Sender: FDA-Public Use
  Company Number: None

PATIENT
  Age: 41 Year
  Sex: Female

DRUGS (1)
  1. CEFAZOLIN INJECTION [Suspect]
     Active Substance: CEFAZOLIN
     Dates: start: 20130622, end: 20130622

REACTIONS (3)
  - Drug-induced liver injury [None]
  - Poor venous access [None]
  - Hepatitis cholestatic [None]

NARRATIVE: CASE EVENT DATE: 20130623
